FAERS Safety Report 23482456 (Version 2)
Quarter: 2024Q1

REPORT INFORMATION
  Report Type: Spontaneous
  Country: RU (occurrence: RU)
  Receive Date: 20240205
  Receipt Date: 20240214
  Transmission Date: 20240409
  Serious: Yes (Death)
  Sender: FDA-Public Use
  Company Number: RU-Eisai-EC-2024-158515

PATIENT
  Age: 15 Year
  Sex: Male
  Weight: 50 kg

DRUGS (1)
  1. FYCOMPA [Suspect]
     Active Substance: PERAMPANEL
     Indication: Epilepsy
     Dosage: FREQUENCY UNKNOWN
     Route: 048
     Dates: start: 20231218

REACTIONS (1)
  - Completed suicide [Fatal]

NARRATIVE: CASE EVENT DATE: 20231231
